FAERS Safety Report 13103497 (Version 2)
Quarter: 2017Q2

REPORT INFORMATION
  Report Type: Spontaneous
  Country: US (occurrence: US)
  Receive Date: 20170111
  Receipt Date: 20170428
  Transmission Date: 20170830
  Serious: Yes (Other)
  Sender: FDA-Public Use
  Company Number: US-TEVA-722818ACC

PATIENT
  Sex: Female

DRUGS (1)
  1. PARAGARD T 380A [Suspect]
     Active Substance: COPPER
     Indication: CONTRACEPTION
     Dates: end: 20161118

REACTIONS (6)
  - Uterine haemorrhage [Recovered/Resolved]
  - Coital bleeding [Unknown]
  - Vaginal haemorrhage [Unknown]
  - Device breakage [Recovered/Resolved]
  - Embedded device [Recovered/Resolved]
  - Pelvic pain [Unknown]
